FAERS Safety Report 16408524 (Version 1)
Quarter: 2019Q2

REPORT INFORMATION
  Report Type: Spontaneous
  Country: DE (occurrence: DE)
  Receive Date: 20190610
  Receipt Date: 20190610
  Transmission Date: 20190711
  Serious: Yes (Hospitalization)
  Sender: FDA-Public Use
  Company Number: DE-UCBSA-2019023689

PATIENT
  Age: 9 Year
  Sex: Male
  Weight: 37 kg

DRUGS (4)
  1. VIMPAT [Suspect]
     Active Substance: LACOSAMIDE
     Dosage: 100 MG DAILY
     Route: 048
     Dates: start: 20190117, end: 20190120
  2. VIMPAT [Suspect]
     Active Substance: LACOSAMIDE
     Dosage: 50 MG MORNING AND 75 MG EVENING
     Route: 048
     Dates: start: 20190121, end: 20190124
  3. VIMPAT [Suspect]
     Active Substance: LACOSAMIDE
     Indication: PARTIAL SEIZURES
     Dosage: 50 MG DAILY
     Route: 048
     Dates: start: 20190114, end: 20190116
  4. TOPAMAX [Concomitant]
     Active Substance: TOPIRAMATE
     Indication: PARTIAL SEIZURES
     Dosage: DAILY DOSE: 200 MG MILLGRAM(S) EVERY DAYS
     Route: 048
     Dates: start: 201707

REACTIONS (3)
  - Drug eruption [Recovered/Resolved]
  - Off label use [Unknown]
  - Pruritus [Recovered/Resolved]

NARRATIVE: CASE EVENT DATE: 20190121
